FAERS Safety Report 17026222 (Version 1)
Quarter: 2019Q4

REPORT INFORMATION
  Report Type: Spontaneous
  Country: US (occurrence: US)
  Receive Date: 20191112
  Receipt Date: 20191112
  Transmission Date: 20200122
  Serious: Yes (Other)
  Sender: FDA-Public Use
  Company Number: None

PATIENT
  Age: 55 Year
  Sex: Female
  Weight: 72.45 kg

DRUGS (9)
  1. BENADRYL [Concomitant]
     Active Substance: DIPHENHYDRAMINE HYDROCHLORIDE
  2. FIBER SUPPLEMENT [Concomitant]
     Active Substance: DIETARY SUPPLEMENT
  3. PRO-BIOTIC [Concomitant]
  4. ARIKAYCE [Suspect]
     Active Substance: AMIKACIN
     Indication: LUNG DISORDER
     Dosage: ?          QUANTITY:1 INHALATION(S);?
     Route: 055
  5. ARIKAYCE [Suspect]
     Active Substance: AMIKACIN
     Indication: MYCOBACTERIAL INFECTION
     Dosage: ?          QUANTITY:1 INHALATION(S);?
     Route: 055
  6. ALBUTEROL. [Concomitant]
     Active Substance: ALBUTEROL
  7. RIFABUTIN. [Concomitant]
     Active Substance: RIFABUTIN
  8. SODIUM CHLORIDE FOR INHALATION [Concomitant]
  9. AZITHROMYCIN ANHYDROUS. [Concomitant]
     Active Substance: AZITHROMYCIN ANHYDROUS

REACTIONS (8)
  - Headache [None]
  - Tinnitus [None]
  - Cough [None]
  - Pyrexia [None]
  - Dyspnoea [None]
  - Dysphonia [None]
  - Chest discomfort [None]
  - Fatigue [None]

NARRATIVE: CASE EVENT DATE: 20191024
